FAERS Safety Report 5488543-3 (Version None)
Quarter: 2007Q4

REPORT INFORMATION
  Report Type: 
  Country: None (occurrence: None)
  Receive Date: 20071016
  Receipt Date: 20071009
  Transmission Date: 20080405
  Serious: Yes (Hospitalization)
  Sender: FDA-Public Use
  Company Number: FR-ASTRAZENECA-2007CG01432

PATIENT
  Age: 73 Year
  Sex: Female

DRUGS (1)
  1. ZESTRIL [Suspect]
     Indication: ACUTE CORONARY SYNDROME
     Route: 048
     Dates: start: 20070624, end: 20070101

REACTIONS (2)
  - LOCALISED OEDEMA [None]
  - TONGUE OEDEMA [None]
